FAERS Safety Report 8270495-4 (Version None)
Quarter: 2012Q2

REPORT INFORMATION
  Report Type: 
  Country: None (occurrence: None)
  Receive Date: 20120410
  Receipt Date: 20120402
  Transmission Date: 20120825
  Serious: Yes (Hospitalization)
  Sender: FDA-Public Use
  Company Number: US-CELGENEUS-163-21880-12040220

PATIENT
  Sex: Male

DRUGS (1)
  1. REVLIMID [Suspect]
     Indication: MULTIPLE MYELOMA
     Dosage: 5 MILLIGRAM
     Route: 048
     Dates: start: 20120320, end: 20120327

REACTIONS (4)
  - FULL BLOOD COUNT DECREASED [None]
  - BLOOD POTASSIUM INCREASED [None]
  - MUSCLE TWITCHING [None]
  - UNRESPONSIVE TO STIMULI [None]
